FAERS Safety Report 18964496 (Version 1)
Quarter: 2021Q1

REPORT INFORMATION
  Report Type: Spontaneous
  Country: US (occurrence: US)
  Receive Date: 20210303
  Receipt Date: 20210303
  Transmission Date: 20210420
  Serious: No
  Sender: FDA-Public Use
  Company Number: US-AMNEAL PHARMACEUTICALS-2020-AMRX-03439

PATIENT
  Sex: Male

DRUGS (2)
  1. RYTARY [Suspect]
     Active Substance: CARBIDOPA\LEVODOPA
     Indication: PARKINSON^S DISEASE
     Dosage: 48.75?195MG, 4 CAPSULES EVERYDAY AT 6AM, 10AM, 2PM AND 6PM
     Route: 048
     Dates: start: 2020, end: 2020
  2. RYTARY [Suspect]
     Active Substance: CARBIDOPA\LEVODOPA
     Dosage: 61.25?245MG,1 CAPSULES, 4 /DAY
     Route: 048
     Dates: start: 20201012

REACTIONS (8)
  - Irritability [Unknown]
  - Dizziness [Not Recovered/Not Resolved]
  - Confusional state [Unknown]
  - Balance disorder [Not Recovered/Not Resolved]
  - Vomiting [Not Recovered/Not Resolved]
  - Mood altered [Unknown]
  - Nausea [Not Recovered/Not Resolved]
  - Prescribed overdose [Unknown]

NARRATIVE: CASE EVENT DATE: 2020
